FAERS Safety Report 9514229 (Version 1)
Quarter: 2013Q3

REPORT INFORMATION
  Report Type: Spontaneous
  Country: US (occurrence: US)
  Receive Date: 20130910
  Receipt Date: 20130910
  Transmission Date: 20140515
  Serious: No
  Sender: FDA-Public Use
  Company Number: -SAAVPROD-BMS19038090

PATIENT
  Sex: Female

DRUGS (1)
  1. IRBESARTAN [Suspect]
     Indication: BLOOD PRESSURE
     Dosage: IRBESARTAN WITHDRAWN; STARTED BRAND AVAPRO

REACTIONS (1)
  - Cough [Recovered/Resolved]
